FAERS Safety Report 15080715 (Version 1)
Quarter: 2018Q2

REPORT INFORMATION
  Report Type: Spontaneous
  Country: JP (occurrence: JP)
  Receive Date: 20180628
  Receipt Date: 20180628
  Transmission Date: 20180711
  Serious: Yes (Other)
  Sender: FDA-Public Use
  Company Number: JP-ROCHE-2146088

PATIENT
  Age: 44 Year
  Sex: Male

DRUGS (3)
  1. PREDNISOLONE. [Concomitant]
     Active Substance: PREDNISOLONE
     Indication: CYTOMEGALOVIRUS CHORIORETINITIS
     Route: 048
  2. DENOSINE (JAPAN) [Suspect]
     Active Substance: GANCICLOVIR
     Indication: CYTOMEGALOVIRUS CHORIORETINITIS
     Route: 041
  3. DENOSINE (JAPAN) [Suspect]
     Active Substance: GANCICLOVIR
     Route: 050

REACTIONS (2)
  - Immune reconstitution inflammatory syndrome [Unknown]
  - Bone marrow failure [Unknown]
